FAERS Safety Report 5347040-6 (Version None)
Quarter: 2007Q2

REPORT INFORMATION
  Report Type: 
  Country: None (occurrence: None)
  Receive Date: 20070604
  Receipt Date: 20070518
  Transmission Date: 20071010
  Serious: Yes (Other)
  Sender: FDA-Public Use
  Company Number: CHNY2007DE01946

PATIENT
  Sex: Male

DRUGS (1)
  1. LAMISIL [Suspect]
     Indication: TINEA PEDIS
     Dosage: TOPICAL
     Route: 061
     Dates: start: 20070301, end: 20070301

REACTIONS (10)
  - BURNING SENSATION [None]
  - CHEMICAL BURN OF SKIN [None]
  - DERMATITIS ALLERGIC [None]
  - ECONOMIC PROBLEM [None]
  - ERYTHEMA [None]
  - GAIT DISTURBANCE [None]
  - MOVEMENT DISORDER [None]
  - OPEN WOUND [None]
  - PAIN IN EXTREMITY [None]
  - SKIN EXFOLIATION [None]
